FAERS Safety Report 16084429 (Version 1)
Quarter: 2019Q2

REPORT INFORMATION
  Report Type: Spontaneous
  Country: US (occurrence: US)
  Receive Date: 20190317
  Receipt Date: 20190317
  Transmission Date: 20190711
  Serious: Yes (Hospitalization, Disabling)
  Sender: FDA-Public Use
  Company Number: None

PATIENT
  Age: 64 Year
  Sex: Female
  Weight: 43.65 kg

DRUGS (1)
  1. DULOXETINE. [Suspect]
     Active Substance: DULOXETINE
     Indication: PAIN
     Dosage: ?          QUANTITY:1 CAPSULE(S);?
     Route: 048
     Dates: start: 20160201, end: 20171201

REACTIONS (13)
  - Generalised tonic-clonic seizure [None]
  - Feeding disorder [None]
  - Dehydration [None]
  - Balance disorder [None]
  - Malnutrition [None]
  - Asthenia [None]
  - Loss of personal independence in daily activities [None]
  - Decreased appetite [None]
  - Paraesthesia [None]
  - Withdrawal syndrome [None]
  - Pain [None]
  - Vomiting [None]
  - Hypoaesthesia [None]

NARRATIVE: CASE EVENT DATE: 20171201
